FAERS Safety Report 4865864-6 (Version None)
Quarter: 2005Q4

REPORT INFORMATION
  Report Type: 
  Country: None (occurrence: None)
  Receive Date: 20051220
  Receipt Date: 20051208
  Transmission Date: 20060501
  Serious: Yes (Hospitalization)
  Sender: FDA-Public Use
  Company Number: 2005164504

PATIENT
  Age: 45 Year
  Sex: Male

DRUGS (2)
  1. FOSPHENYTOIN SODIUM [Suspect]
     Indication: STATUS EPILEPTICUS
     Dosage: (75 MG, UNKNOWN), INTRAVENOUS
     Route: 042
     Dates: start: 20050130, end: 20051101
  2. PHENYTOIN [Suspect]
     Indication: ILL-DEFINED DISORDER
     Dosage: ORAL
     Route: 048
     Dates: start: 20050130, end: 20050101

REACTIONS (1)
  - DRUG HYPERSENSITIVITY [None]
